FAERS Safety Report 4275100-X (Version None)
Quarter: 2004Q1

REPORT INFORMATION
  Report Type: 
  Country: None (occurrence: None)
  Receive Date: 20040116
  Receipt Date: 20040106
  Transmission Date: 20041129
  Serious: Yes (Hospitalization)
  Sender: FDA-Public Use
  Company Number: 2004001108

PATIENT
  Age: 38 Year
  Sex: Male

DRUGS (3)
  1. DOXAZOSIN MESYLATE [Suspect]
     Indication: ILL-DEFINED DISORDER
     Dosage: UNK, UNKNOWN
     Route: 065
  2. CYCLOSPORINE [Suspect]
     Indication: ILL-DEFINED DISORDER
     Dosage: UNK, UNKNOWN
     Route: 065
  3. IRBESARTAN [Suspect]
     Indication: ILL-DEFINED DISORDER
     Dosage: UNK; ORAL
     Route: 048

REACTIONS (2)
  - LARYNGEAL OEDEMA [None]
  - VOCAL CORD PARALYSIS [None]
